FAERS Safety Report 8085953-5 (Version None)
Quarter: 2012Q1

REPORT INFORMATION
  Report Type: 
  Country: None (occurrence: None)
  Receive Date: 20120128
  Receipt Date: 20110502
  Transmission Date: 20120608
  Serious: No
  Sender: FDA-Public Use
  Company Number: US-ABBOTT-11P-163-0723668-00

PATIENT
  Sex: Female

DRUGS (9)
  1. RANITIDINE [Concomitant]
     Indication: CROHN'S DISEASE
  2. CALCIUM [Concomitant]
     Indication: MINERAL SUPPLEMENTATION
  3. HUMIRA [Suspect]
     Indication: CROHN'S DISEASE
     Dates: start: 20090101
  4. HUMIRA [Suspect]
     Indication: RHEUMATOID ARTHRITIS
  5. VICODIN [Concomitant]
     Indication: PAIN
  6. SUCRALFATE [Concomitant]
     Indication: PEPTIC ULCER
  7. FLEXERIL [Concomitant]
     Indication: PAIN
  8. OMEPRAZOLE [Concomitant]
     Indication: GASTROOESOPHAGEAL REFLUX DISEASE
  9. IRON [Concomitant]
     Indication: MINERAL SUPPLEMENTATION

REACTIONS (2)
  - INJECTION SITE NODULE [None]
  - INJECTION SITE HAEMATOMA [None]
